FAERS Safety Report 5969139-3 (Version None)
Quarter: 2008Q4

REPORT INFORMATION
  Report Type: 
  Country: None (occurrence: None)
  Receive Date: 20081126
  Receipt Date: 20081117
  Transmission Date: 20090506
  Serious: Yes (Hospitalization)
  Sender: FDA-Public Use
  Company Number: US-WATSON-2008-06777

PATIENT
  Age: 56 Year
  Sex: Male

DRUGS (5)
  1. FENTANYL [Suspect]
     Indication: BACK PAIN
     Dosage: 200 MCG, UNK
     Route: 062
  2. OXYCODONE HYDROCHLORIDE AND ACETAMINOPHEN [Suspect]
     Indication: BACK PAIN
     Dosage: 60 MG, BID
  3. HYDROMORPHONE HYDROCHLORIDE (WATSON LABORATORIES) [Suspect]
     Indication: BACK PAIN
     Dosage: 27 MG/HR BASAL RATE
  4. MORPHINE SULFATE INJ [Suspect]
     Indication: BACK PAIN
     Dosage: 230 MG, TID
  5. MORPHINE SULFATE INJ [Suspect]
     Dosage: 200 MG, Q3H

REACTIONS (1)
  - HYPERAESTHESIA [None]
